FAERS Safety Report 8180558-X (Version None)
Quarter: 2012Q1

REPORT INFORMATION
  Report Type: 
  Country: None (occurrence: None)
  Receive Date: 20120302
  Receipt Date: 20120229
  Transmission Date: 20120608
  Serious: Yes (Hospitalization, Other)
  Sender: FDA-Public Use
  Company Number: US-PFIZER INC-2011197829

PATIENT
  Sex: Male

DRUGS (6)
  1. PROTONIX [Concomitant]
     Indication: GASTROOESOPHAGEAL REFLUX DISEASE
     Dosage: UNK
     Dates: start: 20050101, end: 20090101
  2. PRILOSEC [Concomitant]
     Indication: GASTROOESOPHAGEAL REFLUX DISEASE
     Dosage: UNK
     Dates: start: 20030101
  3. PRILOSEC [Concomitant]
     Indication: BARRETT'S OESOPHAGUS
  4. PROTONIX [Concomitant]
     Indication: BARRETT'S OESOPHAGUS
  5. CHANTIX [Suspect]
     Indication: SMOKING CESSATION THERAPY
     Dosage: STARTER PACK AND (1) CONTINUING PACK
     Dates: start: 20070201, end: 20080201
  6. AMOXICILLIN [Concomitant]
     Indication: ANTIBIOTIC THERAPY
     Dosage: UNK
     Dates: start: 20050101, end: 20080101

REACTIONS (3)
  - LACERATION [None]
  - SUICIDAL IDEATION [None]
  - GRAND MAL CONVULSION [None]
